FAERS Safety Report 23701639 (Version 1)
Quarter: 2024Q2

REPORT INFORMATION
  Report Type: Spontaneous
  Country: US (occurrence: None)
  Receive Date: 20240402
  Receipt Date: 20240402
  Transmission Date: 20240716
  Serious: Yes (Hospitalization)
  Sender: FDA-Public Use
  Company Number: None

PATIENT
  Age: 67 Year
  Sex: Male
  Weight: 54.3 kg

DRUGS (5)
  1. AXICABTAGENE CILOLEUCEL [Suspect]
     Active Substance: AXICABTAGENE CILOLEUCEL
     Indication: Diffuse large B-cell lymphoma
     Dosage: 68 ML ONCE INTRAVENOUS?
     Route: 042
     Dates: start: 20231227
  2. DECADRON [Concomitant]
     Active Substance: DEXAMETHASONE
  3. anakinra (Kineret) [Concomitant]
  4. VIMPAT [Concomitant]
     Active Substance: LACOSAMIDE
  5. levETIRAcetam (Keppra [Concomitant]

REACTIONS (9)
  - Immune effector cell-associated neurotoxicity syndrome [None]
  - Colonic abscess [None]
  - Septic shock [None]
  - Hypernatraemia [None]
  - Respiratory failure [None]
  - Diverticulitis [None]
  - Large intestine perforation [None]
  - Diverticular fistula [None]
  - Cholecystitis [None]

NARRATIVE: CASE EVENT DATE: 20231227
